FAERS Safety Report 4938671-3 (Version None)
Quarter: 2006Q1

REPORT INFORMATION
  Report Type: 
  Country: None (occurrence: None)
  Receive Date: 20060127
  Receipt Date: 20051024
  Transmission Date: 20060701
  Serious: Yes (Other)
  Sender: FDA-Public Use
  Company Number: 2005147676

PATIENT
  Age: 28 Year
  Sex: Female
  Weight: 53.5244 kg

DRUGS (4)
  1. LYRICA [Suspect]
     Indication: MIGRAINE
     Dosage: (2 IN 1 D)
     Dates: start: 20051003
  2. TYLENOL COUGH (DEXTROMETHORPHAN HYDROBROMIDE, PARACETAMOL) [Suspect]
     Indication: PHARYNGOLARYNGEAL PAIN
     Dates: start: 20051024
  3. ALL OTHER THERAPEUTIC PRODUCTS (ALL OTHER THERAPEUTIC PRODUCTS) [Concomitant]
  4. TOPAMAX [Concomitant]

REACTIONS (3)
  - DIZZINESS [None]
  - DRUG INTERACTION [None]
  - PHARYNGOLARYNGEAL PAIN [None]
